FAERS Safety Report 6744720-2 (Version None)
Quarter: 2010Q2

REPORT INFORMATION
  Report Type: 
  Country: None (occurrence: None)
  Receive Date: 20100527
  Receipt Date: 20090824
  Transmission Date: 20101027
  Serious: No
  Sender: FDA-Public Use
  Company Number: FDAAERSTESTINGFORCHDC6

PATIENT
  Age: 30 Year
  Sex: Female

DRUGS (1)
  1. BIAXIN [Suspect]
     Indication: TONSILLECTOMY

REACTIONS (1)
  - GENITAL SWELLING [None]
